FAERS Safety Report 22700274 (Version 2)
Quarter: 2023Q4

REPORT INFORMATION
  Report Type: Spontaneous
  Country: JP (occurrence: JP)
  Receive Date: 20230713
  Receipt Date: 20231013
  Transmission Date: 20240110
  Serious: Yes (Life-Threatening, Hospitalization, Other)
  Sender: FDA-Public Use
  Company Number: JP-ONO-2023JP017558

PATIENT
  Age: 77 Year
  Sex: Female
  Weight: 40 kg

DRUGS (1)
  1. OPDIVO [Suspect]
     Active Substance: NIVOLUMAB
     Indication: Pleural mesothelioma malignant
     Dosage: 480 MG
     Route: 041
     Dates: start: 20230310, end: 20230310

REACTIONS (2)
  - Immune-mediated myocarditis [Not Recovered/Not Resolved]
  - Off label use [Unknown]

NARRATIVE: CASE EVENT DATE: 20230414
